FAERS Safety Report 10290693 (Version 1)
Quarter: 2014Q3

REPORT INFORMATION
  Report Type: Spontaneous
  Country: US (occurrence: None)
  Receive Date: 20140708
  Receipt Date: 20140708
  Transmission Date: 20150326
  Serious: Yes (Other)
  Sender: FDA-Public Use
  Company Number: None

PATIENT
  Age: 58 Year
  Sex: Male
  Weight: 77.11 kg

DRUGS (1)
  1. XARELTO [Suspect]
     Active Substance: RIVAROXABAN
     Indication: ANTICOAGULANT THERAPY
     Dosage: 1 PILLS, ONCE DAILY, TAKEN BY MOUTH
     Route: 048

REACTIONS (6)
  - Skin irritation [None]
  - Blood urine present [None]
  - Rash [None]
  - Contusion [None]
  - Scleral haemorrhage [None]
  - Mouth haemorrhage [None]

NARRATIVE: CASE EVENT DATE: 20140705
